FAERS Safety Report 6785896-0 (Version None)
Quarter: 2010Q2

REPORT INFORMATION
  Report Type: 
  Country: None (occurrence: None)
  Receive Date: 20100623
  Receipt Date: 20100621
  Transmission Date: 20101027
  Serious: Yes (Other)
  Sender: FDA-Public Use
  Company Number: US-B.I. PHARMACEUTICALS,INC./RIDGEFIELD-2010-BP-06994BP

PATIENT
  Age: 56 Year
  Sex: Female

DRUGS (7)
  1. MICARDIS [Suspect]
     Indication: HYPERTENSION
     Dosage: 40 MG
     Route: 048
     Dates: start: 20010101
  2. TOPROL-XL [Concomitant]
     Indication: ATRIAL FIBRILLATION
  3. XALATAN [Concomitant]
     Indication: GLAUCOMA
  4. NOSE SPRAY [Concomitant]
     Indication: HYPERSENSITIVITY
  5. ULTRAM [Concomitant]
     Indication: ARTHRITIS
  6. NIFEDIPINE [Concomitant]
     Indication: ANORECTAL DISORDER
  7. AZELEX [Concomitant]
     Indication: ROSACEA

REACTIONS (1)
  - BREAST CANCER [None]
